FAERS Safety Report 22033570 (Version 1)
Quarter: 2023Q1

REPORT INFORMATION
  Report Type: Report from Study
  Country: US (occurrence: US)
  Receive Date: 20230224
  Receipt Date: 20230224
  Transmission Date: 20230418
  Serious: No
  Sender: FDA-Public Use
  Company Number: US-AGIOS-2302US03266

PATIENT
  Sex: Female

DRUGS (1)
  1. MITAPIVAT [Suspect]
     Active Substance: MITAPIVAT
     Indication: Pyruvate kinase deficiency anaemia
     Dosage: 100 MILLIGRAM, QD
     Route: 048
     Dates: start: 20221102

REACTIONS (2)
  - Heart rate abnormal [Unknown]
  - Dizziness [Unknown]
